FAERS Safety Report 6444620-1 (Version None)
Quarter: 2009Q4

REPORT INFORMATION
  Report Type: 
  Country: None (occurrence: None)
  Receive Date: 20091117
  Receipt Date: 20091117
  Transmission Date: 20100525
  Serious: Yes (Hospitalization)
  Sender: FDA-Public Use
  Company Number: None

PATIENT
  Age: 54 Year
  Sex: Female

DRUGS (11)
  1. ACAMPROSATE [Suspect]
     Dosage: 1332 MILLIGRAM - STOPPED
  2. CITALOPRAM [Suspect]
     Indication: MAJOR DEPRESSION
     Dosage: 20 MILLIGRAM
  3. CYAMEMAZINE [Suspect]
     Indication: MAJOR DEPRESSION
     Dosage: 20 MILLIGRAM - STOPPED
  4. DIPOTASSIUM [Suspect]
     Indication: DRUG USE FOR UNKNOWN INDICATION
     Dosage: 100 MILLIGRAM
  5. NICARDIPINE HYDROCHLORIDE [Concomitant]
  6. CLORAZEPATE DIPOTASSIUM [Concomitant]
  7. THIAMINE [Concomitant]
  8. THIAMINE [Concomitant]
  9. PYRIDOXINE [Concomitant]
  10. ORAL HYDRATION [Concomitant]
  11. ALCOHOL WITHDRAWAL [Concomitant]

REACTIONS (1)
  - CATATONIA [None]
